FAERS Safety Report 4625359-1 (Version None)
Quarter: 2005Q2

REPORT INFORMATION
  Report Type: 
  Country: None (occurrence: None)
  Receive Date: 20050401
  Receipt Date: 20050325
  Transmission Date: 20051028
  Serious: Yes (Hospitalization)
  Sender: FDA-Public Use
  Company Number: FR-GLAXOSMITHKLINE-B0376240A

PATIENT
  Age: 90 Year
  Sex: Male

DRUGS (4)
  1. AUGMENTIN '125' [Suspect]
     Indication: BRONCHITIS
     Dosage: 1G TWICE PER DAY
     Route: 048
     Dates: start: 20050209, end: 20050209
  2. KETEK [Suspect]
     Indication: BRONCHITIS
     Dosage: 1UNIT TWICE PER DAY
     Route: 048
     Dates: start: 20050210, end: 20050214
  3. CELESTENE [Concomitant]
     Indication: BRONCHITIS
     Dosage: 2MG PER DAY
     Route: 048
     Dates: start: 20050209, end: 20050211
  4. LEVOCETIRIZINE [Concomitant]
     Indication: BRONCHITIS
     Route: 048
     Dates: start: 20050210, end: 20050214

REACTIONS (12)
  - ASTHENIA [None]
  - EOSINOPHILIA [None]
  - EXANTHEM [None]
  - LACRIMATION INCREASED [None]
  - LEUKOCYTOSIS [None]
  - OEDEMA PERIPHERAL [None]
  - PAIN [None]
  - PRURITUS [None]
  - RASH ERYTHEMATOUS [None]
  - RASH PUSTULAR [None]
  - SKIN EXFOLIATION [None]
  - SKIN ULCER [None]
